FAERS Safety Report 5675846-2 (Version None)
Quarter: 2008Q1

REPORT INFORMATION
  Report Type: 
  Country: None (occurrence: None)
  Receive Date: 20080321
  Receipt Date: 20080318
  Transmission Date: 20080703
  Serious: Yes (Other)
  Sender: FDA-Public Use
  Company Number: GB-ASTRAZENECA-2008GB00255

PATIENT
  Age: 40 Year
  Sex: Female
  Weight: 74 kg

DRUGS (1)
  1. SEROQUEL [Suspect]
     Indication: SCHIZOPHRENIA
     Route: 048
     Dates: start: 20061001, end: 20080201

REACTIONS (1)
  - THYROID FUNCTION TEST ABNORMAL [None]
